FAERS Safety Report 4761293-4 (Version None)
Quarter: 2005Q3

REPORT INFORMATION
  Report Type: 
  Country: None (occurrence: None)
  Receive Date: 20050830
  Receipt Date: 20050509
  Transmission Date: 20060218
  Serious: No
  Sender: FDA-Public Use
  Company Number: FABR-11105

PATIENT
  Age: 41 Year
  Sex: Male
  Weight: 100 kg

DRUGS (4)
  1. FABRAZYME [Suspect]
     Indication: FABRY'S DISEASE
     Dosage: 100 MG Q2WKS IV
     Route: 042
     Dates: start: 20050404
  2. FABRAZYME [Suspect]
     Indication: FABRY'S DISEASE
     Dosage: 100 MG Q2WKS IV
     Route: 042
     Dates: start: 20040301
  3. TYLENOL [Concomitant]
  4. CLARITIN [Concomitant]

REACTIONS (3)
  - BACK PAIN [None]
  - CHILLS [None]
  - THROAT IRRITATION [None]
